FAERS Safety Report 11310392 (Version 3)
Quarter: 2015Q3

REPORT INFORMATION
  Report Type: Report from Study
  Country: US (occurrence: US)
  Receive Date: 20150724
  Receipt Date: 20150805
  Transmission Date: 20151125
  Serious: Yes (Other)
  Sender: FDA-Public Use
  Company Number: US-ACTELION-A-NJ2015-121521

PATIENT
  Age: 57 Year
  Sex: Female

DRUGS (3)
  1. OPSUMIT [Suspect]
     Active Substance: MACITENTAN
     Indication: PULMONARY ARTERIAL HYPERTENSION
     Dosage: 10 MG, QD
     Route: 048
  2. VENTAVIS [Suspect]
     Active Substance: ILOPROST
     Indication: PULMONARY ARTERIAL HYPERTENSION
     Dosage: 5 MCG, 6-9X PER DAY
     Route: 055
     Dates: start: 20141107
  3. ADCIRCA [Concomitant]
     Active Substance: TADALAFIL

REACTIONS (9)
  - Throat irritation [Unknown]
  - Dizziness [Unknown]
  - Headache [Unknown]
  - Lung disorder [Unknown]
  - Cough [Unknown]
  - Dyspepsia [Unknown]
  - Asthenia [Unknown]
  - Hodgkin^s disease [Unknown]
  - Chemotherapy [Unknown]
